FAERS Safety Report 19775590 (Version 7)
Quarter: 2024Q4

REPORT INFORMATION
  Report Type: Spontaneous
  Country: FR (occurrence: FR)
  Receive Date: 20210901
  Receipt Date: 20241029
  Transmission Date: 20250115
  Serious: Yes (Hospitalization, Other)
  Sender: MYLAN
  Company Number: FR-GSKCCFEMEA-CASE-01122188_AE-39114

PATIENT
  Age: 46 Year
  Sex: Male

DRUGS (20)
  1. TRAMADOL HYDROCHLORIDE [Suspect]
     Active Substance: TRAMADOL HYDROCHLORIDE
     Indication: Product used for unknown indication
     Dosage: 2 DOSAGE FORM, QD (1 DF, BID)
     Route: 065
     Dates: start: 20201001
  2. TRAMADOL HYDROCHLORIDE [Suspect]
     Active Substance: TRAMADOL HYDROCHLORIDE
     Dosage: 200 MILLIGRAM, QD (100 MG, BID)
     Route: 065
     Dates: start: 20201001
  3. TRAMADOL HYDROCHLORIDE [Suspect]
     Active Substance: TRAMADOL HYDROCHLORIDE
     Dosage: 200 MILLIGRAM, BID (0.5 DAY)
     Route: 065
     Dates: start: 20201001
  4. ACETAMINOPHEN [Suspect]
     Active Substance: ACETAMINOPHEN
     Indication: Product used for unknown indication
     Dosage: 500 MILLIGRAM, PRN
     Route: 065
     Dates: start: 20201001
  5. CEFTRIAXONE [Suspect]
     Active Substance: CEFTRIAXONE
     Indication: Product used for unknown indication
     Dosage: 1 GRAM
     Route: 065
     Dates: start: 20201001, end: 20201009
  6. VANCOMYCIN [Suspect]
     Active Substance: VANCOMYCIN
     Indication: Bacteraemia
     Dosage: UNK
     Route: 042
     Dates: start: 20201001
  7. PAROXETINE HYDROCHLORIDE [Suspect]
     Active Substance: PAROXETINE HYDROCHLORIDE
     Indication: Product used for unknown indication
     Dosage: 1 DOSAGE FORM, QD
     Route: 065
     Dates: start: 20201001, end: 20201127
  8. PAROXETINE HYDROCHLORIDE [Suspect]
     Active Substance: PAROXETINE HYDROCHLORIDE
     Dosage: 20 MILLIGRAM, QD
     Route: 065
     Dates: start: 20201001, end: 20201127
  9. TRAMADOL HYDROCHLORIDE [Suspect]
     Active Substance: TRAMADOL HYDROCHLORIDE
     Indication: Product used for unknown indication
     Dosage: 3 DOSAGE FORM, QD
     Route: 065
     Dates: start: 20201001
  10. TRAMADOL HYDROCHLORIDE [Suspect]
     Active Substance: TRAMADOL HYDROCHLORIDE
     Dosage: 150 MILLIGRAM, QD, IF NEEDED
     Route: 065
     Dates: start: 20201001
  11. TRAMADOL HYDROCHLORIDE [Suspect]
     Active Substance: TRAMADOL HYDROCHLORIDE
     Dosage: 200 MILLIGRAM, QD
     Route: 065
     Dates: start: 20201001
  12. TRAMADOL HYDROCHLORIDE [Suspect]
     Active Substance: TRAMADOL HYDROCHLORIDE
     Dosage: 150 MILLIGRAM, TID (0.33 DAYS)
     Route: 065
     Dates: start: 20201001
  13. PRIVIGEN [Suspect]
     Active Substance: HUMAN IMMUNOGLOBULIN G
     Indication: Product used for unknown indication
     Dosage: 20 GRAM, Q3W (20 G, Z, EVERY 3 WEEKS)
     Route: 065
  14. PRIVIGEN [Suspect]
     Active Substance: HUMAN IMMUNOGLOBULIN G
     Dosage: UNK UNK, Q3W
     Route: 065
  15. OXAZEPAM [Suspect]
     Active Substance: OXAZEPAM
     Indication: Product used for unknown indication
     Dosage: 1 DOSAGE FORM, QD
     Route: 065
     Dates: start: 20201001
  16. OXAZEPAM [Suspect]
     Active Substance: OXAZEPAM
     Dosage: 10 MILLIGRAM, QD
     Route: 065
     Dates: start: 20201001
  17. BACTRIM [Suspect]
     Active Substance: SULFAMETHOXAZOLE\TRIMETHOPRIM
     Indication: Product used for unknown indication
     Dosage: UNK, QD (1/2 TAB)
     Route: 065
     Dates: start: 20201001
  18. VITAMIN K1 [Suspect]
     Active Substance: PHYTONADIONE
     Indication: Product used for unknown indication
     Dosage: 10 MILLIGRAM, QW
     Route: 065
     Dates: start: 20201001
  19. CLINDAMYCIN [Suspect]
     Active Substance: CLINDAMYCIN
     Indication: Product used for unknown indication
     Dosage: UNK
     Route: 065
     Dates: start: 20201207, end: 20201207
  20. CLINDAMYCIN [Suspect]
     Active Substance: CLINDAMYCIN
     Dosage: 6 DOSAGE FORM, QD (2 DF, TID, 300)
     Route: 065
     Dates: start: 20201207, end: 20201217

REACTIONS (7)
  - Staphylococcal infection [Unknown]
  - Pneumonia staphylococcal [Unknown]
  - Bacteraemia [Unknown]
  - Hyper IgE syndrome [Unknown]
  - Gynaecomastia [Unknown]
  - Infection [Unknown]
  - Weight decreased [Unknown]

NARRATIVE: CASE EVENT DATE: 20201001
